FAERS Safety Report 7753928-9 (Version None)
Quarter: 2011Q3

REPORT INFORMATION
  Report Type: 
  Country: None (occurrence: None)
  Receive Date: 20110915
  Receipt Date: 20110912
  Transmission Date: 20111222
  Serious: Yes (Other)
  Sender: FDA-Public Use
  Company Number: RO-ABBOTT-11P-135-0854146-00

PATIENT
  Age: 61 Year
  Sex: Male
  Weight: 80 kg

DRUGS (5)
  1. FUROSEMIDE [Concomitant]
     Indication: HYPERTENSION
     Dosage: 40MG DAILY DOSE
     Route: 042
     Dates: start: 20110912, end: 20110912
  2. ASPATOFOR [Concomitant]
     Indication: PROPHYLAXIS
     Dosage: 20 ML DAILY DOSE
     Route: 042
     Dates: start: 20110912, end: 20110912
  3. ASPATOFOR [Concomitant]
     Indication: LIVER DISORDER
  4. KLACID I.V. [Suspect]
     Indication: INTERSTITIAL LUNG DISEASE
     Route: 042
     Dates: start: 20110909
  5. SERUM [Concomitant]
     Indication: MEDICATION DILUTION
     Dosage: 1000 ML DAILY DOSE
     Route: 042
     Dates: start: 20110912, end: 20110912

REACTIONS (4)
  - DYSPNOEA [None]
  - HEADACHE [None]
  - HYPERTENSION [None]
  - BACK PAIN [None]
